FAERS Safety Report 11553566 (Version 1)
Quarter: 2015Q3

REPORT INFORMATION
  Report Type: Spontaneous
  Country: US (occurrence: US)
  Receive Date: 20150903
  Receipt Date: 20150903
  Transmission Date: 20151125
  Serious: No
  Sender: FDA-Public Use
  Company Number: US-ELI_LILLY_AND_COMPANY-US201007001271

PATIENT
  Age: 68 Year
  Sex: Female

DRUGS (4)
  1. ASPIRIN. [Concomitant]
     Active Substance: ASPIRIN
  2. HUMALOG [Suspect]
     Active Substance: INSULIN LISPRO
     Dosage: 4 U, UNKNOWN
     Dates: start: 20100630, end: 20100630
  3. HUMALOG [Suspect]
     Active Substance: INSULIN LISPRO
     Indication: TYPE 1 DIABETES MELLITUS
  4. LANTUS [Concomitant]
     Active Substance: INSULIN GLARGINE
     Dosage: UNK, EACH MORNING

REACTIONS (9)
  - Drug ineffective [Unknown]
  - Sensory loss [Unknown]
  - Pain in extremity [Recovered/Resolved]
  - Retinopathy [Unknown]
  - Neuralgia [Recovered/Resolved]
  - Neuropathy peripheral [Not Recovered/Not Resolved]
  - Nerve injury [Recovered/Resolved]
  - Drug dose omission [Unknown]
  - Blood glucose increased [Unknown]
